FAERS Safety Report 26120291 (Version 1)
Quarter: 2025Q4

REPORT INFORMATION
  Report Type: Spontaneous
  Country: EU (occurrence: EU)
  Receive Date: 20251204
  Receipt Date: 20251204
  Transmission Date: 20260118
  Serious: Yes (Hospitalization, Other)
  Sender: AUROBINDO
  Company Number: EU-AEMPS-1779874

PATIENT
  Age: 71 Year
  Sex: Male

DRUGS (10)
  1. AMOXICILLIN\CLAVULANIC ACID [Suspect]
     Active Substance: AMOXICILLIN\CLAVULANIC ACID
     Indication: Cellulitis
     Dosage: 1 DOSAGE FORM, 3 TIMES A DAY
     Dates: start: 20250911, end: 20250916
  2. CIPROFLOXACIN [Suspect]
     Active Substance: CIPROFLOXACIN
     Indication: Cellulitis
     Dosage: 750 MILLIGRAM, TWO TIMES A DAY
     Dates: start: 20250905, end: 20250916
  3. CLINDAMYCIN [Suspect]
     Active Substance: CLINDAMYCIN
     Indication: Cellulitis
     Dosage: 300 MILLIGRAM, EVERY 6 HOURS
     Dates: start: 20250829, end: 20250916
  4. SIMVASTATINA CINFAMED 10 MG COMPRIMIDOS RECUBIERTOS CON PELICULA EFG, [Concomitant]
     Indication: Product used for unknown indication
     Dosage: 10 MILLIGRAM, ONCE A DAY
     Dates: start: 20250304
  5. ALOPURINOL NORMON 100 mg COMPRIMIDOS EFG , 25 comprimidos [Concomitant]
     Indication: Product used for unknown indication
     Dosage: 100 MILLIGRAM, ONCE A DAY
     Dates: start: 20240124
  6. EBASTEL FORTE FLAS 20 mg LIOFILIZADOS ORALES, 20 liofilizados [Concomitant]
     Indication: Product used for unknown indication
     Dosage: 20 MILLIGRAM, ONCE A DAY
     Dates: start: 20230223
  7. OPTOVITE B12 1.000 MICROGRAMOS SOLUCI?N INYECTABLE , 5 ampollas de 2 m [Concomitant]
     Indication: Product used for unknown indication
     Dosage: 1 MILLIGRAM, 1 MONTH
  8. ATENOLOL [Concomitant]
     Active Substance: ATENOLOL
     Indication: Product used for unknown indication
     Dosage: 50 MILLIGRAM, ONCE A DAY
  9. LERCANIDIPINO (2757A) [Concomitant]
     Indication: Product used for unknown indication
     Dosage: 20 MILLIGRAM, ONCE A DAY
  10. OLMESARTAN [Concomitant]
     Active Substance: OLMESARTAN
     Indication: Product used for unknown indication
     Dosage: 20 MILLIGRAM, ONCE A DAY

REACTIONS (2)
  - Tubulointerstitial nephritis [Recovered/Resolved]
  - Acute kidney injury [Recovered/Resolved]

NARRATIVE: CASE EVENT DATE: 20250916
